FAERS Safety Report 14399611 (Version 2)
Quarter: 2018Q1

REPORT INFORMATION
  Report Type: Spontaneous
  Country: US (occurrence: US)
  Receive Date: 20180117
  Receipt Date: 20180328
  Transmission Date: 20180509
  Serious: Yes (Death, Hospitalization, Other)
  Sender: FDA-Public Use
  Company Number: US-JNJFOC-20171228599

PATIENT
  Age: 84 Year
  Sex: Male

DRUGS (2)
  1. XARELTO [Suspect]
     Active Substance: RIVAROXABAN
     Indication: TRANSIENT ISCHAEMIC ATTACK
     Route: 048
     Dates: start: 201512, end: 20160322
  2. XARELTO [Suspect]
     Active Substance: RIVAROXABAN
     Indication: DEEP VEIN THROMBOSIS
     Route: 048
     Dates: start: 201512, end: 20160322

REACTIONS (7)
  - Epistaxis [Recovering/Resolving]
  - Gastrointestinal haemorrhage [Unknown]
  - Rectal haemorrhage [Recovered/Resolved]
  - Haematuria [Recovering/Resolving]
  - Aspiration [Fatal]
  - Renal haemorrhage [Unknown]
  - Melaena [Recovering/Resolving]

NARRATIVE: CASE EVENT DATE: 201601
